FAERS Safety Report 9364981 (Version 2)
Quarter: 2013Q3

REPORT INFORMATION
  Report Type: Report from Study
  Country: US (occurrence: US)
  Receive Date: 20130624
  Receipt Date: 20130808
  Transmission Date: 20140515
  Serious: No
  Sender: FDA-Public Use
  Company Number: US-US-EMD SERONO, INC.-7219430

PATIENT
  Sex: Female
  Weight: 47 kg

DRUGS (1)
  1. REBIF [Suspect]
     Indication: MULTIPLE SCLEROSIS
     Route: 058
     Dates: start: 20100407

REACTIONS (2)
  - Multiple sclerosis relapse [Unknown]
  - Somnolence [Recovering/Resolving]
